FAERS Safety Report 22931572 (Version 3)
Quarter: 2023Q4

REPORT INFORMATION
  Report Type: Spontaneous
  Country: US (occurrence: US)
  Receive Date: 20230911
  Receipt Date: 20231010
  Transmission Date: 20240109
  Serious: No
  Sender: FDA-Public Use
  Company Number: US-Calliditas-2023CAL01133

PATIENT
  Age: 61 Year
  Sex: Male

DRUGS (11)
  1. TARPEYO [Suspect]
     Active Substance: BUDESONIDE
     Indication: IgA nephropathy
     Dosage: 16 MG (4 MG CAPSULES) ONCE DAILY
     Route: 048
     Dates: start: 20230408
  2. FARXIGA [Concomitant]
     Active Substance: DAPAGLIFLOZIN PROPANEDIOL
  3. IRON [Concomitant]
     Active Substance: IRON
  4. SIMVASTATIN [Concomitant]
     Active Substance: SIMVASTATIN
  5. SERTRALINE [Concomitant]
     Active Substance: SERTRALINE HYDROCHLORIDE
  6. LISINOPRIL [Concomitant]
     Active Substance: LISINOPRIL
  7. FISH OIL [Concomitant]
     Active Substance: FISH OIL
  8. SODIUM BICARBONATE [Concomitant]
     Active Substance: SODIUM BICARBONATE
  9. TACROLIMUS [Concomitant]
     Active Substance: TACROLIMUS
  10. NIFEDIPINE [Concomitant]
     Active Substance: NIFEDIPINE
  11. CALCIUM [Concomitant]
     Active Substance: CALCIUM

REACTIONS (4)
  - COVID-19 [Recovered/Resolved]
  - Brain fog [Not Recovered/Not Resolved]
  - Proteinuria [Unknown]
  - Swelling [Unknown]

NARRATIVE: CASE EVENT DATE: 20230415
